FAERS Safety Report 7057258 (Version 2)
Quarter: 2014Q3

REPORT INFORMATION
  Report Type: Spontaneous
  Country: US (occurrence: None)
  Receive Date: 20090713
  Receipt Date: 20140918
  Transmission Date: 20150326
  Serious: Yes (Hospitalization, Other)
  Sender: FDA-Public Use
  Company Number: 2009S1005351

PATIENT
  Age: 75 Year
  Sex: Female
  Weight: 66 kg

DRUGS (7)
  1. FLEET [Suspect]
     Active Substance: BISACODYL\GLYCERIN\MINERAL OIL\SODIUM PHOSPHATE, DIBASIC\SODIUM PHOSPHATE, MONOBASIC
     Indication: COLONOSCOPY
     Route: 054
     Dates: start: 20031023
  2. TOPROL (METHOPROLOL SUCCINATE) [Concomitant]
  3. MICARDIS HCT (HYDROCHLOROTHIAZIDE, TELMISARTAN) [Concomitant]
  4. TEMAZEPAM. [Concomitant]
     Active Substance: TEMAZEPAM
  5. ASPIRIN (ACETYLSALICYLIC ACID) [Concomitant]
     Active Substance: ASPIRIN
  6. PHOSPHO-SODA [Suspect]
     Active Substance: SODIUM PHOSPHATE, DIBASIC\SODIUM PHOSPHATE, MONOBASIC
     Indication: COLONOSCOPY
     Dosage: 2 IN 1 DAYS, ORAL
     Route: 048
     Dates: start: 20031022, end: 20031022
  7. PRILOSEC (OMEPRAZOLE) [Concomitant]
     Active Substance: OMEPRAZOLE MAGNESIUM

REACTIONS (10)
  - Renal failure chronic [None]
  - Anaemia [None]
  - Fatigue [None]
  - Lethargy [None]
  - Renal tubular necrosis [None]
  - Abdominal distension [None]
  - Hyperphosphataemia [None]
  - Hypertension [None]
  - Asthenia [None]
  - Renal failure acute [None]
